FAERS Safety Report 5837623-9 (Version None)
Quarter: 2008Q3

REPORT INFORMATION
  Report Type: 
  Country: None (occurrence: None)
  Receive Date: 20080807
  Receipt Date: 20080730
  Transmission Date: 20090109
  Serious: Yes (Other)
  Sender: FDA-Public Use
  Company Number: US-PFIZER INC-2008064322

PATIENT
  Sex: Female
  Weight: 112.27 kg

DRUGS (9)
  1. LYRICA [Suspect]
     Indication: SCIATICA
  2. LYRICA [Suspect]
     Indication: FIBROMYALGIA
  3. OXYBUTIN [Concomitant]
  4. TOPAMAX [Concomitant]
  5. CRANBERRY [Concomitant]
     Indication: URINARY TRACT INFECTION
  6. LORAZEPAM [Concomitant]
     Indication: NERVOUSNESS
  7. LORAZEPAM [Concomitant]
     Indication: INSOMNIA
  8. BENADRYL [Concomitant]
     Indication: HYPERSENSITIVITY
  9. CELEXA [Concomitant]
     Indication: DEPRESSION

REACTIONS (2)
  - DEPRESSION [None]
  - MANIA [None]
